FAERS Safety Report 7639217-1 (Version None)
Quarter: 2011Q3

REPORT INFORMATION
  Report Type: 
  Country: None (occurrence: None)
  Receive Date: 20110721
  Receipt Date: 20110713
  Transmission Date: 20111222
  Serious: Yes (Death)
  Sender: FDA-Public Use
  Company Number: KV201100114

PATIENT
  Age: 5 Year
  Sex: Male

DRUGS (1)
  1. ONDANSETRON [Suspect]
     Indication: VOMITING
     Dosage: 2 MG, SINGLE, SUBLINGUAL
     Route: 060

REACTIONS (10)
  - LIVER DISORDER [None]
  - THROMBOSIS [None]
  - HYPERTHERMIA MALIGNANT [None]
  - MUSCLE RIGIDITY [None]
  - BLOOD POTASSIUM INCREASED [None]
  - LYMPHADENOPATHY [None]
  - CARDIAC ARREST [None]
  - BRONCHOPNEUMONIA [None]
  - ENTEROVIRUS INFECTION [None]
  - VENTRICULAR TACHYCARDIA [None]
